FAERS Safety Report 9471871 (Version 1)
Quarter: 2013Q3

REPORT INFORMATION
  Report Type: Spontaneous
  Country: US (occurrence: US)
  Receive Date: 20130822
  Receipt Date: 20130822
  Transmission Date: 20140515
  Serious: No
  Sender: FDA-Public Use
  Company Number: US-009507513-1308USA008634

PATIENT
  Sex: Male

DRUGS (7)
  1. DULERA [Suspect]
     Indication: COUGH
     Dosage: 4 PUFFS PER DAY
     Route: 055
     Dates: start: 20130718, end: 20130814
  2. LOSARTAN POTASSIUM TABLETS [Concomitant]
  3. OMEPRAZOLE [Concomitant]
  4. PREDNISONE [Concomitant]
     Indication: COUGH
  5. ALLOPURINOL [Concomitant]
  6. GEMFIBROZIL [Concomitant]
  7. DOXAZOSIN MESYLATE [Concomitant]
     Indication: PROSTATE INFECTION
     Dosage: UNK

REACTIONS (2)
  - Pollakiuria [Recovering/Resolving]
  - Drug ineffective [Unknown]
